FAERS Safety Report 5219079-2 (Version None)
Quarter: 2007Q1

REPORT INFORMATION
  Report Type: 
  Country: None (occurrence: None)
  Receive Date: 20070124
  Receipt Date: 20070124
  Transmission Date: 20070707
  Serious: No
  Sender: FDA-Public Use
  Company Number: None

PATIENT
  Age: 57 Year
  Sex: Female
  Weight: 99.7913 kg

DRUGS (1)
  1. PRIMIDONE [Suspect]
     Indication: EPILEPSY
     Dosage: 250 MG. 125MG. 0MG. 250MG.
     Dates: start: 20050103, end: 20050315

REACTIONS (6)
  - CONVULSION [None]
  - FACIAL PALSY [None]
  - HEADACHE [None]
  - HYPOAESTHESIA [None]
  - SOMNOLENCE [None]
  - VISUAL DISTURBANCE [None]
